FAERS Safety Report 14816358 (Version 4)
Quarter: 2024Q2

REPORT INFORMATION
  Report Type: Report from Study
  Country: FR (occurrence: FR)
  Receive Date: 20180426
  Receipt Date: 20240412
  Transmission Date: 20240716
  Serious: Yes (Other)
  Sender: FDA-Public Use
  Company Number: None

PATIENT

DRUGS (32)
  1. PEGASPARGASE [Suspect]
     Active Substance: PEGASPARGASE
     Indication: Acute lymphocytic leukaemia
     Dosage: 4200 IU
     Route: 042
     Dates: start: 20161205
  2. PEGASPARGASE [Suspect]
     Active Substance: PEGASPARGASE
     Dosage: 4200 IU
     Route: 042
     Dates: start: 20170602, end: 20170715
  3. DOXORUBICIN [Suspect]
     Active Substance: DOXORUBICIN
     Indication: Acute lymphocytic leukaemia
     Dosage: 42 MG,UNK
     Route: 042
     Dates: start: 20170530, end: 20170613
  4. DOXORUBICIN [Suspect]
     Active Substance: DOXORUBICIN
     Dosage: 42 MG
     Route: 042
     Dates: start: 20161130
  5. HYDROCORTISONE [Suspect]
     Active Substance: HYDROCORTISONE
     Indication: Acute lymphocytic leukaemia
     Dosage: 15 MG,UNK
     Route: 037
     Dates: start: 20161202
  6. MERCAPTOPURINE [Suspect]
     Active Substance: MERCAPTOPURINE
     Indication: Acute lymphocytic leukaemia
     Dosage: 40 MG,QD
     Route: 048
     Dates: start: 20170113
  7. DEXAMETHASONE [Suspect]
     Active Substance: DEXAMETHASONE
     Indication: Acute lymphocytic leukaemia
     Dosage: 96 MG,UNK
     Route: 048
     Dates: start: 20170317, end: 20170322
  8. DEXAMETHASONE [Suspect]
     Active Substance: DEXAMETHASONE
     Dosage: 16.5 MG,UNK
     Route: 048
     Dates: start: 20170530, end: 20170613
  9. VINCRISTINE [Suspect]
     Active Substance: VINCRISTINE
     Indication: Acute lymphocytic leukaemia
     Dosage: 2 MG
     Route: 042
     Dates: start: 20161130
  10. VINCRISTINE [Suspect]
     Active Substance: VINCRISTINE
     Dosage: 2 MG,QD TOTAL DOSE: 470
     Route: 042
     Dates: start: 20170530, end: 20170722
  11. PREDNISONE ACETATE [Suspect]
     Active Substance: PREDNISONE ACETATE
     Indication: Acute lymphocytic leukaemia
     Dosage: UNK
     Route: 037
     Dates: start: 20170602, end: 20170602
  12. PREDNISONE [Suspect]
     Active Substance: PREDNISONE
     Indication: Acute lymphocytic leukaemia
     Dosage: 100 MG, QD TOTAL DOSE: 3000
     Route: 048
     Dates: start: 20161129, end: 20161228
  13. PREDNISONE [Suspect]
     Active Substance: PREDNISONE
     Dosage: 15 MG, QD
     Route: 048
     Dates: start: 20161202
  14. PREDNISONE [Suspect]
     Active Substance: PREDNISONE
     Dosage: UNK UNK, QD
     Route: 037
     Dates: start: 20170602, end: 20170602
  15. CYTARABINE [Suspect]
     Active Substance: CYTARABINE
     Indication: Acute lymphocytic leukaemia
     Dosage: 30 MG,UNK
     Route: 037
     Dates: start: 20161202
  16. CYTARABINE [Suspect]
     Active Substance: CYTARABINE
     Dosage: 110 MG,UNK
     Route: 042
     Dates: start: 20161202
  17. CYTARABINE [Suspect]
     Active Substance: CYTARABINE
     Dosage: 30 MG,QDTOTAL DOSE: 1680
     Route: 037
     Dates: start: 20170602, end: 20170602
  18. CYTARABINE [Suspect]
     Active Substance: CYTARABINE
     Dosage: 110 MG,UNK
     Route: 042
     Dates: start: 20170115
  19. CYTARABINE [Suspect]
     Active Substance: CYTARABINE
     Dosage: 110 MG,QDTOTAL DOSE: 1680
     Route: 042
     Dates: start: 20170629, end: 20170713
  20. CYTARABINE [Suspect]
     Active Substance: CYTARABINE
     Dosage: 120 MG, 1X/DAY:QD
     Route: 042
     Dates: start: 20170629, end: 20170713
  21. CYTARABINE [Suspect]
     Active Substance: CYTARABINE
     Dosage: 120 MG,UNKTOTAL DOSE: 1680
     Route: 042
  22. METHOTREXATE SODIUM [Suspect]
     Active Substance: METHOTREXATE SODIUM
     Indication: Acute lymphocytic leukaemia
     Dosage: 15 MG, QD
     Route: 037
     Dates: start: 20161129
  23. METHOTREXATE SODIUM [Suspect]
     Active Substance: METHOTREXATE SODIUM
     Dosage: 4200 IU
     Route: 042
     Dates: start: 20161205
  24. METHOTREXATE SODIUM [Suspect]
     Active Substance: METHOTREXATE SODIUM
     Dosage: 8000 MG, QD
     Route: 042
     Dates: start: 20170417
  25. METHOTREXATE SODIUM [Suspect]
     Active Substance: METHOTREXATE SODIUM
     Dosage: 15 MG, QD
     Route: 037
     Dates: start: 20170602, end: 20170629
  26. ETOPOSIDE [Suspect]
     Active Substance: ETOPOSIDE
     Indication: Acute lymphocytic leukaemia
     Dosage: 240 MG,QDTOTAL DOSE: 720
     Route: 042
     Dates: start: 20170319, end: 20170321
  27. THIOGUANINE ANHYDROUS [Suspect]
     Active Substance: THIOGUANINE ANHYDROUS
     Indication: Acute lymphocytic leukaemia
     Dosage: UNK
     Route: 048
     Dates: start: 20170610, end: 20170714
  28. THIOGUANINE ANHYDROUS [Suspect]
     Active Substance: THIOGUANINE ANHYDROUS
     Dosage: UNK
     Route: 048
     Dates: start: 20170627, end: 20170707
  29. DAUNORUBICIN [Suspect]
     Active Substance: DAUNORUBICIN
     Indication: Acute lymphocytic leukaemia
     Dosage: 65 MG, QD
     Route: 042
     Dates: start: 20161130, end: 20161222
  30. DAUNORUBICIN [Suspect]
     Active Substance: DAUNORUBICIN
     Dosage: 65 MG, QD
     Route: 042
     Dates: start: 20170530
  31. CYCLOPHOSPHAMIDE [Suspect]
     Active Substance: CYCLOPHOSPHAMIDE
     Indication: Acute lymphocytic leukaemia
     Dosage: 1500 MG,UNK1980 MG,QD TOTAL DOSE: 1640
     Route: 042
     Dates: start: 20170113, end: 20170209
  32. CYCLOPHOSPHAMIDE [Suspect]
     Active Substance: CYCLOPHOSPHAMIDE
     Dosage: 1640 MG,QDTOTAL DOSE: 1640
     Route: 042
     Dates: start: 20170621, end: 20170627

REACTIONS (4)
  - Hypertriglyceridaemia [Recovered/Resolved]
  - Hypertriglyceridaemia [Recovered/Resolved]
  - Off label use [Recovered/Resolved]
  - Product use in unapproved indication [Recovered/Resolved]

NARRATIVE: CASE EVENT DATE: 20161205
